FAERS Safety Report 16126770 (Version 2)
Quarter: 2019Q2

REPORT INFORMATION
  Report Type: Report from Study
  Country: IT (occurrence: IT)
  Receive Date: 20190328
  Receipt Date: 20190422
  Transmission Date: 20190711
  Serious: Yes (Hospitalization)
  Sender: FDA-Public Use
  Company Number: IT-INCYTE CORPORATION-2019IN001946

PATIENT

DRUGS (11)
  1. NORVASC [Concomitant]
     Active Substance: AMLODIPINE BESYLATE
     Indication: HYPERTENSION
     Dosage: 5 OT, UNK
     Route: 065
     Dates: start: 20120503
  2. FOLINA [FOLIC ACID] [Concomitant]
     Active Substance: FOLIC ACID
     Indication: PROPHYLAXIS
     Dosage: 5 OT, UNK
     Route: 065
     Dates: start: 20130415
  3. JAKAVI [Suspect]
     Active Substance: RUXOLITINIB
     Dosage: 5 MG, QD
     Route: 048
     Dates: start: 20181124, end: 20181203
  4. JAKAVI [Suspect]
     Active Substance: RUXOLITINIB
     Dosage: 5 OT, UNK
     Route: 065
     Dates: start: 20190102
  5. ACETYLSALICYLIC ACID [Concomitant]
     Active Substance: ASPIRIN
     Indication: THROMBOSIS PROPHYLAXIS
     Dosage: 100 OT, UNK
     Route: 065
     Dates: start: 20180826
  6. SPIRIVA [Concomitant]
     Active Substance: TIOTROPIUM BROMIDE MONOHYDRATE
     Indication: OBSTRUCTIVE AIRWAYS DISORDER
     Dosage: 2 OT, UNK
     Route: 065
     Dates: start: 20150908
  7. GEMFIBROZIL. [Concomitant]
     Active Substance: GEMFIBROZIL
     Indication: HYPERTRIGLYCERIDAEMIA
     Dosage: 900 OT, UNK
     Route: 065
     Dates: start: 20120918
  8. BICALUTAMIDE. [Concomitant]
     Active Substance: BICALUTAMIDE
     Indication: PROSTATE CANCER
     Dosage: 150 OT, UNK
     Route: 065
     Dates: start: 20150604
  9. BICALUTAMIDE. [Concomitant]
     Active Substance: BICALUTAMIDE
     Indication: PROSTATE CANCER
  10. JAKAVI [Suspect]
     Active Substance: RUXOLITINIB
     Indication: POLYCYTHAEMIA VERA
     Dosage: 10 OT, UNK
     Route: 065
     Dates: start: 20181116, end: 20181123
  11. FERRO GRAD [Concomitant]
     Active Substance: FERROUS SULFATE
     Indication: IRON DEFICIENCY
     Dosage: 105 OT, UNK
     Route: 065
     Dates: start: 20180521

REACTIONS (12)
  - Acute kidney injury [Recovered/Resolved]
  - Blood glucose decreased [Unknown]
  - Platelet count decreased [Unknown]
  - C-reactive protein increased [Unknown]
  - Eosinophil count increased [Unknown]
  - Urinary tract infection [Recovered/Resolved]
  - Lymphocyte count decreased [Unknown]
  - Neutrophil count increased [Unknown]
  - Monocyte count increased [Unknown]
  - Blood sodium increased [Unknown]
  - Basophil count increased [Unknown]
  - Blood lactate dehydrogenase increased [Unknown]

NARRATIVE: CASE EVENT DATE: 20181123
